FAERS Safety Report 8536736-0 (Version None)
Quarter: 2012Q3

REPORT INFORMATION
  Report Type: 
  Country: None (occurrence: None)
  Receive Date: 20120725
  Receipt Date: 20120717
  Transmission Date: 20120928
  Serious: Yes (Hospitalization)
  Sender: FDA-Public Use
  Company Number: US-US-EMD SERONO, INC.-7148559

PATIENT
  Sex: Female

DRUGS (3)
  1. REBIF [Suspect]
     Indication: MULTIPLE SCLEROSIS
     Route: 058
     Dates: start: 20120701, end: 20120712
  2. REBIF [Suspect]
     Dates: start: 20120715
  3. PREDNISONE [Concomitant]
     Indication: OPTIC NEURITIS

REACTIONS (4)
  - OPTIC NEURITIS [None]
  - GAIT DISTURBANCE [None]
  - HEADACHE [None]
  - MULTIPLE SCLEROSIS [None]
